FAERS Safety Report 10149202 (Version 1)
Quarter: 2014Q2

REPORT INFORMATION
  Report Type: Spontaneous
  Country: US (occurrence: None)
  Receive Date: 20140501
  Receipt Date: 20140501
  Transmission Date: 20141212
  Serious: No
  Sender: FDA-Public Use
  Company Number: None

PATIENT
  Sex: Female

DRUGS (4)
  1. SUTENT [Suspect]
     Indication: RENAL CANCER
     Route: 048
  2. LORAZEPAM [Concomitant]
  3. FLUOXETINE [Concomitant]
  4. MOBIC [Concomitant]

REACTIONS (6)
  - Skin exfoliation [None]
  - Diarrhoea [None]
  - Tremor [None]
  - Insomnia [None]
  - Memory impairment [None]
  - Stomatitis [None]
